FAERS Safety Report 8618647-5 (Version None)
Quarter: 2012Q3

REPORT INFORMATION
  Report Type: 
  Country: None (occurrence: None)
  Receive Date: 20120810
  Receipt Date: 20120726
  Transmission Date: 20120928
  Serious: Yes (Death, Other)
  Sender: FDA-Public Use
  Company Number: TPA2012A03370

PATIENT
  Age: 55 Year
  Sex: Male
  Weight: 93.8946 kg

DRUGS (3)
  1. INSULIN [Concomitant]
  2. ACTOS [Suspect]
     Indication: TYPE 2 DIABETES MELLITUS
     Dates: start: 20030627, end: 20061227
  3. NOVOLOG [Concomitant]

REACTIONS (5)
  - CONVULSION [None]
  - PANCREATITIS [None]
  - METASTASES TO NERVOUS SYSTEM [None]
  - BLADDER CANCER [None]
  - HEPATIC CANCER METASTATIC [None]
